FAERS Safety Report 9798405 (Version 1)
Quarter: 2013Q4

REPORT INFORMATION
  Report Type: Spontaneous
  Country: RU (occurrence: None)
  Receive Date: 20131230
  Receipt Date: 20131230
  Transmission Date: 20140711
  Serious: Yes (Other)
  Sender: FDA-Public Use
  Company Number: 2013000364

PATIENT
  Age: 73 Year
  Sex: Female
  Weight: 70 kg

DRUGS (5)
  1. ACEON (PERINDOPRIL ERBUMINE) TABLET [Suspect]
     Indication: HYPERTENSION
     Route: 048
     Dates: start: 20131113, end: 20131127
  2. OMEPRAZOLE (OMEPRAZOLE) [Concomitant]
  3. PANCREATIN (PANCREATIN) [Concomitant]
  4. AMLODIPINE [Concomitant]
  5. INSULIN [Concomitant]

REACTIONS (4)
  - Blood pressure increased [None]
  - Drug ineffective [None]
  - Glossodynia [None]
  - Blood glucose increased [None]
